FAERS Safety Report 9947651 (Version 1)
Quarter: 2014Q1

REPORT INFORMATION
  Report Type: Report from Study
  Country: US (occurrence: US)
  Receive Date: 20140303
  Receipt Date: 20140303
  Transmission Date: 20141002
  Serious: No
  Sender: FDA-Public Use
  Company Number: US-ABBVIE-13P-163-1062825-00

PATIENT
  Age: 48 Year
  Sex: Female

DRUGS (7)
  1. HUMIRA [Suspect]
     Indication: CROHN^S DISEASE
     Dates: start: 20130221
  2. ASACOL HD [Concomitant]
     Indication: CROHN^S DISEASE
  3. SYNTHROID [Concomitant]
     Indication: HYPOTHYROIDISM
  4. RECLAST [Concomitant]
     Indication: OSTEOPOROSIS
     Dosage: DUE IN APRIL
  5. ZYRTEC [Concomitant]
     Indication: SEASONAL ALLERGY
  6. IMMODIUM [Concomitant]
     Indication: PRODUCT USED FOR UNKNOWN INDICATION
  7. TYLENOL [Concomitant]
     Indication: PAIN

REACTIONS (1)
  - Injection site bruising [Recovering/Resolving]
